FAERS Safety Report 7422165-X (Version None)
Quarter: 2011Q2

REPORT INFORMATION
  Report Type: 
  Country: None (occurrence: None)
  Receive Date: 20110418
  Receipt Date: 20101026
  Transmission Date: 20111010
  Serious: Yes (Hospitalization, Other)
  Sender: FDA-Public Use
  Company Number: US-BAYER-201024711NA

PATIENT
  Age: 25 Year
  Sex: Female
  Weight: 62.585 kg

DRUGS (10)
  1. AUGMENTIN [Concomitant]
     Indication: PRODUCT USED FOR UNKNOWN INDICATION
     Dosage: 500 MG, UNK
     Route: 048
  2. CAFFEINE [CAFFEINE] [Concomitant]
  3. PROZAC [Concomitant]
     Indication: PRODUCT USED FOR UNKNOWN INDICATION
     Dosage: UNK
     Route: 048
     Dates: start: 20051103
  4. ANTIBIOTICS [Concomitant]
     Indication: VAGINAL INFECTION
     Dosage: UNK
     Dates: start: 20050601
  5. MULTI-VITAMINS [Concomitant]
     Indication: PRODUCT USED FOR UNKNOWN INDICATION
  6. DOXICICLINA [DOXYCYCLINE] [Concomitant]
     Indication: PRODUCT USED FOR UNKNOWN INDICATION
     Dosage: 100 MG, UNK
     Route: 048
     Dates: start: 20021210, end: 20050506
  7. YAZ [Suspect]
     Indication: PRODUCT USED FOR UNKNOWN INDICATION
     Dosage: UNK
     Route: 048
     Dates: start: 20050101, end: 20060101
  8. ORTHO TRI-CYCLEN [Concomitant]
     Indication: PRODUCT USED FOR UNKNOWN INDICATION
     Dosage: UNK
     Route: 048
     Dates: start: 20050822, end: 20060927
  9. NAPROXEN [Concomitant]
     Dosage: UNK
     Dates: start: 20060818
  10. NSAID'S [Concomitant]
     Dosage: UNK
     Dates: start: 20010101

REACTIONS (4)
  - LIMB DISCOMFORT [None]
  - PAIN IN EXTREMITY [None]
  - OEDEMA PERIPHERAL [None]
  - DEEP VEIN THROMBOSIS [None]
